FAERS Safety Report 8199369-4 (Version None)
Quarter: 2012Q1

REPORT INFORMATION
  Report Type: 
  Country: None (occurrence: None)
  Receive Date: 20120309
  Receipt Date: 20120227
  Transmission Date: 20120608
  Serious: Yes (Hospitalization, Other)
  Sender: FDA-Public Use
  Company Number: AU-MYLANLABS-2012S1004173

PATIENT
  Age: 61 Year
  Sex: Male

DRUGS (1)
  1. ATENOLOL [Suspect]
     Indication: BLOOD PRESSURE
     Route: 048
     Dates: end: 20120201

REACTIONS (4)
  - CHEST PAIN [None]
  - PALPITATIONS [None]
  - SEXUAL DYSFUNCTION [None]
  - BLOOD PRESSURE INCREASED [None]
